FAERS Safety Report 4728543-1 (Version None)
Quarter: 2005Q3

REPORT INFORMATION
  Report Type: 
  Country: None (occurrence: None)
  Receive Date: 20050729
  Receipt Date: 20050718
  Transmission Date: 20060218
  Serious: Yes (Other)
  Sender: FDA-Public Use
  Company Number: CA-JNJFOC-20050703250

PATIENT
  Age: 54 Year
  Sex: Female

DRUGS (1)
  1. DURAGESIC-100 [Suspect]
     Indication: ACCIDENTAL EXPOSURE
     Dosage: 1 EVERY 55-72 HOURS

REACTIONS (2)
  - ACCIDENTAL EXPOSURE [None]
  - CARDIAC FAILURE CONGESTIVE [None]
